FAERS Safety Report 21079711 (Version 1)
Quarter: 2022Q3

REPORT INFORMATION
  Report Type: Spontaneous
  Country: US (occurrence: US)
  Receive Date: 20220714
  Receipt Date: 20220714
  Transmission Date: 20221027
  Serious: No
  Sender: FDA-Public Use
  Company Number: US-GSKCCFUS-Case-01429539_AE-82109

PATIENT
  Sex: Female

DRUGS (3)
  1. FLOVENT DISKUS [Suspect]
     Active Substance: FLUTICASONE PROPIONATE
     Indication: Product used for unknown indication
     Dosage: UNK
  2. FLOVENT DISKUS [Suspect]
     Active Substance: FLUTICASONE PROPIONATE
     Indication: Product used for unknown indication
     Dosage: UNK
  3. FLOVENT DISKUS [Suspect]
     Active Substance: FLUTICASONE PROPIONATE

REACTIONS (3)
  - Lower respiratory tract congestion [Unknown]
  - Dyspnoea [Unknown]
  - Wrong technique in product usage process [Unknown]
